FAERS Safety Report 9057809 (Version 2)
Quarter: 2013Q3

REPORT INFORMATION
  Report Type: Spontaneous
  Country: CA (occurrence: CA)
  Receive Date: 20130204
  Receipt Date: 20130812
  Transmission Date: 20140515
  Serious: Yes (Hospitalization, Other)
  Sender: FDA-Public Use
  Company Number: CA-ASTRAZENECA-2013SE06963

PATIENT
  Age: 3 Day
  Sex: Male
  Weight: 5 kg

DRUGS (2)
  1. SYNAGIS [Suspect]
     Indication: ANTIVIRAL PROPHYLAXIS
     Route: 030
     Dates: start: 2011, end: 2012
  2. SUCROSE [Concomitant]
     Indication: PRODUCT USED FOR UNKNOWN INDICATION
     Route: 065

REACTIONS (4)
  - Rash erythematous [Recovering/Resolving]
  - Vomiting [Recovered/Resolved]
  - Abnormal behaviour [Unknown]
  - Poor sucking reflex [Unknown]
